FAERS Safety Report 16896519 (Version 1)
Quarter: 2019Q4

REPORT INFORMATION
  Report Type: Spontaneous
  Country: US (occurrence: US)
  Receive Date: 20191008
  Receipt Date: 20191008
  Transmission Date: 20200122
  Serious: No
  Sender: FDA-Public Use
  Company Number: US-LEXICON PHARMACEUTICALS, INC-19-1606-00910

PATIENT
  Sex: Female

DRUGS (12)
  1. TELOTRISTAT ETHYL [Suspect]
     Active Substance: TELOTRISTAT ETHYL
     Indication: CARCINOID TUMOUR
     Dates: start: 20180410
  2. ARMOUR THYRO [Concomitant]
  3. LORTAB [Concomitant]
     Active Substance: ACETAMINOPHEN\HYDROCODONE BITARTRATE
  4. CREON [Concomitant]
     Active Substance: PANCRELIPASE AMYLASE\PANCRELIPASE LIPASE\PANCRELIPASE PROTEASE
  5. QSYMIA [Concomitant]
     Active Substance: PHENTERMINE HYDROCHLORIDE\TOPIRAMATE
  6. OCTREOTIDE ACETATE. [Concomitant]
     Active Substance: OCTREOTIDE ACETATE
  7. FUROSEMIDE. [Concomitant]
     Active Substance: FUROSEMIDE
  8. DIAZEPAM. [Concomitant]
     Active Substance: DIAZEPAM
  9. FENOFIBRATE. [Concomitant]
     Active Substance: FENOFIBRATE
  10. CARVEDILOL. [Concomitant]
     Active Substance: CARVEDILOL
  11. VOLTAREN [Concomitant]
     Active Substance: DICLOFENAC SODIUM
  12. IRBESARTAN. [Concomitant]
     Active Substance: IRBESARTAN

REACTIONS (2)
  - Feeding disorder [Unknown]
  - Vomiting [Unknown]
